FAERS Safety Report 15008797 (Version 1)
Quarter: 2018Q2

REPORT INFORMATION
  Report Type: Spontaneous
  Country: US (occurrence: US)
  Receive Date: 20180527
  Receipt Date: 20180527
  Transmission Date: 20180711
  Serious: Yes (Life-Threatening, Other)
  Sender: FDA-Public Use
  Company Number: None

PATIENT
  Age: 27 Year
  Sex: Male
  Weight: 99.9 kg

DRUGS (3)
  1. LAMICTAL XR [Suspect]
     Active Substance: LAMOTRIGINE
     Indication: EPILEPSY
     Route: 048
     Dates: end: 20180416
  2. LEVETIRACETAM. [Concomitant]
     Active Substance: LEVETIRACETAM
  3. RIZATRIPTAN PRN [Concomitant]

REACTIONS (3)
  - Swelling face [None]
  - Rash [None]
  - Mouth swelling [None]

NARRATIVE: CASE EVENT DATE: 20180402
